FAERS Safety Report 6985210-1 (Version None)
Quarter: 2010Q3

REPORT INFORMATION
  Report Type: 
  Country: None (occurrence: None)
  Receive Date: 20100915
  Receipt Date: 20100902
  Transmission Date: 20110219
  Serious: Yes (Hospitalization)
  Sender: FDA-Public Use
  Company Number: US-ROCHE-725906

PATIENT
  Sex: Female
  Weight: 61.2 kg

DRUGS (18)
  1. BEVACIZUMAB [Suspect]
     Indication: NON-SMALL CELL LUNG CANCER
     Dosage: LAST DOSE PRIOR TO SAE: 29 JULY 2010
     Route: 042
     Dates: start: 20100707
  2. PEMETREXED [Suspect]
     Indication: NON-SMALL CELL LUNG CANCER
     Dosage: LAST DOSE PRIOR TO SAE: 29 JULY 2010
     Route: 042
     Dates: start: 20100707
  3. CARBOPLATIN [Suspect]
     Indication: NON-SMALL CELL LUNG CANCER
     Dosage: DOSE: 6 AUC LAST DOSE PRIOR TO SAE: 29 JULY 2010
     Route: 042
     Dates: start: 20100707
  4. ASCORBIC ACID [Concomitant]
     Dates: start: 20100701
  5. CALCIUM/ERGOCALCIFEROL [Concomitant]
     Dosage: REPORTED AS CALCIUM W/ VITAMIN D
  6. ALBUTEROL SULFATE AND IPRATROPIUM BROMIDE [Concomitant]
     Dates: start: 20100701
  7. FEXOFENADINE HCL [Concomitant]
     Dates: start: 20100701
  8. PREMPRO [Concomitant]
     Dates: start: 20100701
  9. CRESTOR [Concomitant]
     Dates: start: 20100701
  10. SYNTHROID [Concomitant]
     Dates: start: 20100701
  11. CELEXA [Concomitant]
     Dates: start: 20100701
  12. OMEPRAZOLE [Concomitant]
     Dates: start: 20100701
  13. ALLEGRA [Concomitant]
     Dates: start: 20100701
  14. ADVAIR DISKUS 100/50 [Concomitant]
     Dates: start: 20100701
  15. FOLIC ACID [Concomitant]
     Dates: start: 20100702
  16. HYDROCODONE BITARTRATE [Concomitant]
     Dosage: REPORTED AS HYDROCODONE/HOMATROPINE
     Dates: start: 20100707
  17. ZOFRAN [Concomitant]
     Dates: start: 20100707
  18. MEGACE [Concomitant]
     Dates: start: 20100819

REACTIONS (1)
  - PROCEDURAL COMPLICATION [None]
